FAERS Safety Report 4360199-2 (Version None)
Quarter: 2004Q2

REPORT INFORMATION
  Report Type: 
  Country: None (occurrence: None)
  Receive Date: 20040518
  Receipt Date: 20040518
  Transmission Date: 20050107
  Serious: Yes (Other)
  Sender: FDA-Public Use
  Company Number: None

PATIENT
  Sex: Female
  Weight: 58.9676 kg

DRUGS (1)
  1. DEPO-PROVERA [Suspect]
     Indication: CONTRACEPTION
     Dosage: SHOT EVERY 3 MO

REACTIONS (4)
  - HAIR GROWTH ABNORMAL [None]
  - NERVOUSNESS [None]
  - PARANOIA [None]
  - VAGINAL HAEMORRHAGE [None]
